FAERS Safety Report 25958437 (Version 1)
Quarter: 2025Q4

REPORT INFORMATION
  Report Type: Spontaneous
  Country: AU (occurrence: AU)
  Receive Date: 20251024
  Receipt Date: 20251024
  Transmission Date: 20260117
  Serious: Yes (Other)
  Sender: PROVEPHARM
  Company Number: AU-Provepharm-2187256

PATIENT
  Sex: Male

DRUGS (5)
  1. PROVAYBLUE [Suspect]
     Active Substance: METHYLENE BLUE
     Indication: Product used for unknown indication
  2. METARAMINOL [Suspect]
     Active Substance: METARAMINOL
  3. VASOPRESSIN [Suspect]
     Active Substance: VASOPRESSIN
  4. EPINEPHRINE BITARTRATE [Suspect]
     Active Substance: EPINEPHRINE BITARTRATE
  5. NOREPINEPHRINE BITARTRATE [Suspect]
     Active Substance: NOREPINEPHRINE BITARTRATE

REACTIONS (2)
  - Multiple organ dysfunction syndrome [Unknown]
  - Drug ineffective [Unknown]
